FAERS Safety Report 7340651-8 (Version None)
Quarter: 2011Q1

REPORT INFORMATION
  Report Type: 
  Country: None (occurrence: None)
  Receive Date: 20110309
  Receipt Date: 20110302
  Transmission Date: 20110831
  Serious: Yes (Death, Other)
  Sender: FDA-Public Use
  Company Number: JP-ROCHE-755105

PATIENT
  Age: 73 Year
  Sex: Female

DRUGS (32)
  1. TOCILIZUMAB [Suspect]
     Route: 041
     Dates: start: 20110131, end: 20110131
  2. LASIX [Concomitant]
     Route: 048
     Dates: start: 20100826, end: 20100905
  3. LASIX [Concomitant]
     Route: 048
     Dates: start: 20100925, end: 20101124
  4. DIFLUCAN [Concomitant]
     Route: 048
     Dates: start: 20100123
  5. FUNGIZONE [Concomitant]
     Route: 048
     Dates: end: 20110214
  6. TOCILIZUMAB [Suspect]
     Route: 041
     Dates: start: 20101021, end: 20110117
  7. LASIX [Concomitant]
     Dosage: FORM: PERORAL AGENT
     Route: 048
     Dates: end: 20100805
  8. BENET [Concomitant]
     Route: 048
  9. ZYLORIC [Concomitant]
     Dosage: FORM: PERORAL AGENT
     Route: 048
     Dates: end: 20110214
  10. TOCILIZUMAB [Suspect]
     Route: 041
     Dates: start: 20110124, end: 20110124
  11. LASIX [Concomitant]
     Route: 048
     Dates: start: 20100906, end: 20100917
  12. ANPLAG [Concomitant]
     Dosage: FORM: PERORAL AGENT
     Route: 048
  13. TOCILIZUMAB [Suspect]
     Route: 041
     Dates: start: 20110207, end: 20110207
  14. PREDNISOLONE [Concomitant]
     Route: 048
     Dates: end: 20100520
  15. LASIX [Concomitant]
     Route: 048
     Dates: start: 20101209, end: 20101215
  16. LASIX [Concomitant]
     Route: 048
     Dates: start: 20100806, end: 20100825
  17. LASIX [Concomitant]
     Route: 048
     Dates: start: 20100918, end: 20100924
  18. LASIX [Concomitant]
     Route: 048
     Dates: start: 20101216, end: 20110215
  19. PREDNISOLONE [Concomitant]
     Dosage: FORM: PERORAL AGENT
     Route: 048
  20. PREDNISOLONE [Concomitant]
     Route: 048
     Dates: start: 20100731
  21. ALKERAN [Concomitant]
     Route: 048
  22. BAKTAR [Concomitant]
     Route: 048
     Dates: end: 20110214
  23. OMEPRAL [Concomitant]
     Dosage: FORM: ENTERIC CAOTING DRUG
     Route: 048
  24. SODIUM BICARBONATE [Concomitant]
     Dosage: FORM: PERORAL AGENT
     Route: 048
  25. PAXIL [Concomitant]
     Dosage: PERORAL AGENT
     Route: 048
     Dates: start: 20100521, end: 20110214
  26. TOCILIZUMAB [Suspect]
     Indication: CASTLEMAN'S DISEASE
     Route: 041
     Dates: start: 20091216, end: 20100924
  27. TOCILIZUMAB [Suspect]
     Route: 041
     Dates: start: 20110214, end: 20110214
  28. LASIX [Concomitant]
     Route: 048
     Dates: start: 20101125, end: 20101208
  29. FUROSEMIDE [Concomitant]
     Route: 048
     Dates: start: 20100521
  30. PREDNISOLONE [Concomitant]
     Route: 048
     Dates: start: 20100521, end: 20100730
  31. NORMONAL [Concomitant]
     Route: 048
  32. TAKEPRON [Concomitant]
     Dosage: PERORAL AGENT
     Route: 048
     Dates: start: 20100715, end: 20110214

REACTIONS (16)
  - URINARY TRACT INFECTION [None]
  - PLATELET COUNT DECREASED [None]
  - TIBIA FRACTURE [None]
  - HAEMOGLOBIN DECREASED [None]
  - MOUTH HAEMORRHAGE [None]
  - BLOOD PRESSURE DECREASED [None]
  - VOMITING [None]
  - CASTLEMAN'S DISEASE [None]
  - HAEMORRHAGE [None]
  - RENAL FAILURE [None]
  - PNEUMONIA ASPIRATION [None]
  - RED BLOOD CELL COUNT DECREASED [None]
  - HAEMORRHAGE SUBCUTANEOUS [None]
  - BLOOD ALBUMIN INCREASED [None]
  - DISEASE PROGRESSION [None]
  - CAPILLARY PERMEABILITY INCREASED [None]
